FAERS Safety Report 10065168 (Version 1)
Quarter: 2014Q1

REPORT INFORMATION
  Report Type: Spontaneous
  Country: US (occurrence: None)
  Receive Date: 20140328
  Receipt Date: 20140328
  Transmission Date: 20141002
  Serious: No
  Sender: FDA-Public Use
  Company Number: CABO-14003938

PATIENT
  Age: 72 Year
  Sex: Female
  Weight: 73.6 kg

DRUGS (2)
  1. COMETRIQ [Suspect]
     Indication: THYROID CANCER
     Route: 048
     Dates: start: 2013
  2. LEVOTHYROXINE (LEVOTHYROXINE) [Concomitant]

REACTIONS (5)
  - Walking disability [None]
  - Blister [None]
  - Diarrhoea [None]
  - Ageusia [None]
  - Dysgeusia [None]
